FAERS Safety Report 13166988 (Version 4)
Quarter: 2017Q2

REPORT INFORMATION
  Report Type: Spontaneous
  Country: CN (occurrence: CN)
  Receive Date: 20170131
  Receipt Date: 20170512
  Transmission Date: 20170830
  Serious: Yes (Other)
  Sender: FDA-Public Use
  Company Number: PHHY2017CN012208

PATIENT
  Age: 22 Year
  Sex: Female

DRUGS (2)
  1. TRILEPTAL [Suspect]
     Active Substance: OXCARBAZEPINE
     Indication: EPILEPSY
     Dosage: 1 TABLET MORNING, 1 AND 1/2 TABLET EVENING
     Route: 048
  2. TRILEPTAL [Suspect]
     Active Substance: OXCARBAZEPINE
     Dosage: TRILEPTAL DRUG FROM OTHER BATCH (BATCH NUMBER: NOT REPORTED) WITH CONCENTRATION 300 MG
     Route: 048

REACTIONS (4)
  - Petit mal epilepsy [Recovered/Resolved]
  - Epilepsy [Unknown]
  - Inappropriate schedule of drug administration [Unknown]
  - Product quality issue [Unknown]
